FAERS Safety Report 16157199 (Version 1)
Quarter: 2019Q2

REPORT INFORMATION
  Report Type: Spontaneous
  Country: US (occurrence: US)
  Receive Date: 20190404
  Receipt Date: 20190404
  Transmission Date: 20190711
  Serious: No
  Sender: FDA-Public Use
  Company Number: US-MYLANLABS-2019M1027034

PATIENT
  Sex: Female

DRUGS (5)
  1. ATORVASTATIN [Concomitant]
     Active Substance: ATORVASTATIN
     Indication: HYPERLIPIDAEMIA
     Dosage: 20 MILLIGRAM, QD
  2. CLONAZEPAM. [Concomitant]
     Active Substance: CLONAZEPAM
     Indication: SEIZURE
     Dosage: 1 MILLIGRAM, QD
  3. CLONAZEPAM. [Concomitant]
     Active Substance: CLONAZEPAM
     Indication: PANIC DISORDER
  4. AMITRIPTYLINE MYLAN [Suspect]
     Active Substance: AMITRIPTYLINE
     Indication: INSOMNIA
     Dosage: 50 MILLIGRAM, TABLETS TWO TABLETS BY MOUTH ONCE DAILY AT HOUR OF SLEEP
     Route: 048
     Dates: start: 1994, end: 20181215
  5. ATENOLOL. [Concomitant]
     Active Substance: ATENOLOL
     Indication: TACHYCARDIA
     Dosage: 50 MILLIGRAM, QD

REACTIONS (4)
  - Dyschezia [Unknown]
  - Product use in unapproved indication [Unknown]
  - Dysuria [Unknown]
  - Dry mouth [Unknown]
